FAERS Safety Report 5238193-9 (Version None)
Quarter: 2007Q1

REPORT INFORMATION
  Report Type: 
  Country: None (occurrence: None)
  Receive Date: 20070215
  Receipt Date: 20070205
  Transmission Date: 20070707
  Serious: Yes (Hospitalization)
  Sender: FDA-Public Use
  Company Number: FR-AMGEN-UK209919

PATIENT
  Age: 65 Year
  Sex: Female
  Weight: 93 kg

DRUGS (11)
  1. ARANESP [Suspect]
     Route: 058
  2. TIAPRIDAL [Concomitant]
  3. IMOVANE [Concomitant]
  4. ASPIRIN [Concomitant]
  5. SODIUM BICARBONATE [Concomitant]
  6. MOPRAL [Concomitant]
  7. AMLOR [Concomitant]
     Route: 048
  8. DETENSIEL [Concomitant]
     Route: 048
  9. TAHOR [Concomitant]
     Route: 048
  10. LASIX [Concomitant]
     Route: 048
  11. TRIATEC [Concomitant]
     Route: 048

REACTIONS (1)
  - CEREBROVASCULAR ACCIDENT [None]
